FAERS Safety Report 11844856 (Version 2)
Quarter: 2016Q2

REPORT INFORMATION
  Report Type: Report from Study
  Country: US (occurrence: US)
  Receive Date: 20151217
  Receipt Date: 20160602
  Transmission Date: 20160815
  Serious: Yes (Death, Hospitalization)
  Sender: FDA-Public Use
  Company Number: US-ARIAD-2015US005453

PATIENT
  Sex: Female

DRUGS (4)
  1. ICLUSIG [Suspect]
     Active Substance: PONATINIB
     Dosage: 15 MG, QD
     Route: 048
     Dates: start: 20150810
  2. ICLUSIG [Suspect]
     Active Substance: PONATINIB
     Dosage: 45 MG, QOD
     Route: 048
     Dates: start: 20150810
  3. ICLUSIG [Suspect]
     Active Substance: PONATINIB
     Indication: CHLOROMA
     Dosage: 45 MG, QD
     Route: 048
     Dates: start: 20150810
  4. ICLUSIG [Suspect]
     Active Substance: PONATINIB
     Dosage: 45 MG, QD
     Route: 048
     Dates: start: 20150810

REACTIONS (4)
  - Hospitalisation [Not Recovered/Not Resolved]
  - Off label use [Unknown]
  - Platelet count decreased [Unknown]
  - Death [Fatal]
